FAERS Safety Report 9450654 (Version 1)
Quarter: 2013Q3

REPORT INFORMATION
  Report Type: Spontaneous
  Country: KR (occurrence: None)
  Receive Date: 20130807
  Receipt Date: 20130807
  Transmission Date: 20140515
  Serious: Yes (Hospitalization)
  Sender: FDA-Public Use
  Company Number: FK201302972

PATIENT
  Age: 6 Month
  Sex: Female

DRUGS (3)
  1. VALPROATE (MANUFACTURER UNKNOWN) (VALPROATE SODIUM) (VALPROATE SODIUM) [Suspect]
     Indication: CONVULSION
  2. DIAZEOAM (DIAZEPAM) [Concomitant]
  3. LORAZEPAM  (LORAZEPAM) [Concomitant]

REACTIONS (5)
  - Hypogammaglobulinaemia [None]
  - Pancytopenia [None]
  - Normochromic normocytic anaemia [None]
  - Iron deficiency anaemia [None]
  - Status epilepticus [None]
